FAERS Safety Report 4837911-9 (Version None)
Quarter: 2005Q4

REPORT INFORMATION
  Report Type: 
  Country: None (occurrence: None)
  Receive Date: 20051123
  Receipt Date: 20051031
  Transmission Date: 20060501
  Serious: Yes (Hospitalization)
  Sender: FDA-Public Use
  Company Number: 2005140547

PATIENT
  Sex: Male

DRUGS (1)
  1. DETRUSITOL (TOLTERODINE L- TARTRATE) [Suspect]
     Indication: INCONTINENCE
     Dosage: 4 MG (4 MG, 1 IN 1 D), ORAL
     Route: 048

REACTIONS (2)
  - CARDIAC DISORDER [None]
  - URINARY RETENTION [None]
